FAERS Safety Report 20604496 (Version 1)
Quarter: 2022Q1

REPORT INFORMATION
  Report Type: Spontaneous
  Country: FR (occurrence: FR)
  Receive Date: 20220316
  Receipt Date: 20220316
  Transmission Date: 20220423
  Serious: Yes (Hospitalization)
  Sender: FDA-Public Use
  Company Number: FR-AFSSAPS-PS20220482

PATIENT
  Age: 14 Year
  Sex: Female
  Weight: 49 kg

DRUGS (1)
  1. ACETAMINOPHEN [Suspect]
     Active Substance: ACETAMINOPHEN
     Indication: Toxicity to various agents
     Dosage: 1000 MILLIGRAM (11X1G TOTAL 11G)
     Route: 065
     Dates: start: 20210319, end: 20210319

REACTIONS (4)
  - Coagulation factor X level decreased [Recovered/Resolved]
  - Prothrombin time shortened [Recovered/Resolved]
  - Analgesic drug level increased [Recovered/Resolved]
  - Coagulation factor VII level decreased [Recovered/Resolved]

NARRATIVE: CASE EVENT DATE: 20210319
